FAERS Safety Report 25210105 (Version 1)
Quarter: 2025Q2

REPORT INFORMATION
  Report Type: Spontaneous
  Country: PT (occurrence: PT)
  Receive Date: 20250417
  Receipt Date: 20250417
  Transmission Date: 20250717
  Serious: Yes (Other)
  Sender: PFIZER
  Company Number: PT-SA-2025SA093692

PATIENT
  Age: 30 Year
  Sex: Male

DRUGS (2)
  1. HYDROCORTISONE SODIUM SUCCINATE [Suspect]
     Active Substance: HYDROCORTISONE SODIUM SUCCINATE
     Indication: Cushing^s syndrome
     Dosage: 40 MG, 1X/DAY
  2. HYDROCORTISONE SODIUM SUCCINATE [Suspect]
     Active Substance: HYDROCORTISONE SODIUM SUCCINATE
     Dosage: 25 MG, 1X/DAY

REACTIONS (2)
  - Steroid withdrawal syndrome [Recovering/Resolving]
  - Nephrolithiasis [Unknown]
